FAERS Safety Report 16613571 (Version 1)
Quarter: 2019Q3

REPORT INFORMATION
  Report Type: Report from Study
  Country: CN (occurrence: CN)
  Receive Date: 20190723
  Receipt Date: 20190723
  Transmission Date: 20191004
  Serious: Yes (Other)
  Sender: FDA-Public Use
  Company Number: CN-SUN PHARMACEUTICAL INDUSTRIES LTD-2019R1-213857

PATIENT

DRUGS (2)
  1. CAPECITABINE. [Suspect]
     Active Substance: CAPECITABINE
     Indication: CARCINOID TUMOUR
     Dosage: 750 MG/M2 TWICE DAILY, DAYS 1-14 (EVERY 28 DAY)
     Route: 065
     Dates: start: 2014, end: 2018
  2. TEMOZOLOMIDE. [Suspect]
     Active Substance: TEMOZOLOMIDE
     Indication: CARCINOID TUMOUR
     Dosage: 200 MG/M2 ONCE DAILY, DAYS 10-14 (EVERY 28 DAY)
     Route: 065
     Dates: start: 2014, end: 2018

REACTIONS (1)
  - Disease progression [Unknown]
